FAERS Safety Report 18865135 (Version 1)
Quarter: 2021Q1

REPORT INFORMATION
  Report Type: Spontaneous
  Country: US (occurrence: US)
  Receive Date: 20210208
  Receipt Date: 20210208
  Transmission Date: 20210420
  Serious: No
  Sender: FDA-Public Use
  Company Number: None

PATIENT
  Age: 9 Year
  Sex: Female
  Weight: 24.75 kg

DRUGS (8)
  1. MELATONIN [Concomitant]
     Active Substance: MELATONIN
  2. SINGULAIR [Concomitant]
     Active Substance: MONTELUKAST SODIUM
  3. AMCAR [Concomitant]
  4. MONTELUKAST [Suspect]
     Active Substance: MONTELUKAST SODIUM
     Indication: ASTHMA
     Dosage: ?          QUANTITY:1 TABLET(S);?
     Route: 048
     Dates: start: 20140701
  5. ALBUTEROL. [Concomitant]
     Active Substance: ALBUTEROL
  6. CLARITIN [Concomitant]
     Active Substance: LORATADINE
  7. QVAR [Concomitant]
     Active Substance: BECLOMETHASONE DIPROPIONATE
  8. GUMMY VITAMIN [Concomitant]

REACTIONS (6)
  - Insomnia [None]
  - Thinking abnormal [None]
  - Mood altered [None]
  - Aggression [None]
  - Screaming [None]
  - Depression [None]
